FAERS Safety Report 5375878-8 (Version None)
Quarter: 2007Q3

REPORT INFORMATION
  Report Type: 
  Country: None (occurrence: None)
  Receive Date: 20070702
  Receipt Date: 20070629
  Transmission Date: 20080115
  Serious: Yes (Life-Threatening, Hospitalization)
  Sender: FDA-Public Use
  Company Number: PHBS2007DK10956

PATIENT
  Age: 44 Year
  Sex: Male

DRUGS (2)
  1. VOLTAREN [Suspect]
     Indication: PAIN
     Dosage: 6 TABLETS/24 HOURS
     Route: 048
     Dates: start: 20070421, end: 20070421
  2. IBUPROFEN [Concomitant]
     Dosage: 600 MG, UNK

REACTIONS (1)
  - INTRACARDIAC THROMBUS [None]
